FAERS Safety Report 10061318 (Version 3)
Quarter: 2015Q2

REPORT INFORMATION
  Report Type: Report from Study
  Country: JP (occurrence: JP)
  Receive Date: 20140407
  Receipt Date: 20150626
  Transmission Date: 20150821
  Serious: Yes (Hospitalization)
  Sender: FDA-Public Use
  Company Number: JP-UCBSA-116645

PATIENT
  Age: 64 Year
  Sex: Female
  Weight: 33.2 kg

DRUGS (8)
  1. IMURAN [Concomitant]
     Active Substance: AZATHIOPRINE
     Indication: DERMATOMYOSITIS
     Dosage: DAILY DOSE: 100MG
     Route: 048
  2. RINDERON V [Concomitant]
     Active Substance: BETAMETHASONE VALERATE
     Dosage: DAILY DOSE: 0.625MG
     Route: 048
     Dates: start: 20130726, end: 20131106
  3. RINDERON V [Concomitant]
     Active Substance: BETAMETHASONE VALERATE
     Dosage: DAILY DOSE: 0.5 MG
     Route: 048
     Dates: start: 20131107
  4. TRACLEER [Suspect]
     Active Substance: BOSENTAN\BOSENTAN MONOHYDRATE
     Dosage: DAILY DOSE: 62.5MG
     Route: 048
     Dates: start: 20110712, end: 20131205
  5. CERTOLIZUMAB PEGOL RA [Suspect]
     Active Substance: CERTOLIZUMAB PEGOL
     Indication: RHEUMATOID ARTHRITIS
     Dosage: 200 MG, EV 2 WEEKS(QOW)
     Route: 058
     Dates: start: 20130911, end: 20131204
  6. CERTOLIZUMAB PEGOL RA [Suspect]
     Active Substance: CERTOLIZUMAB PEGOL
     Dosage: 400 MG, EV 2 WEEKS(QOW)
     Route: 058
     Dates: start: 20130731, end: 20130828
  7. RINDERON V [Concomitant]
     Active Substance: BETAMETHASONE VALERATE
     Indication: RHEUMATOID ARTHRITIS
     Dosage: DAILY DOSE: 0.75MG
     Route: 048
     Dates: end: 20130725
  8. CELECOX [Suspect]
     Active Substance: CELECOXIB
     Indication: RHEUMATOID ARTHRITIS
     Dosage: DAILY DOSE: 400 MG
     Route: 048

REACTIONS (1)
  - Benign gastric neoplasm [Recovering/Resolving]

NARRATIVE: CASE EVENT DATE: 20131129
